FAERS Safety Report 14776674 (Version 1)
Quarter: 2018Q2

REPORT INFORMATION
  Report Type: Spontaneous
  Country: FR (occurrence: FR)
  Receive Date: 20180419
  Receipt Date: 20180419
  Transmission Date: 20180711
  Serious: Yes (Other)
  Sender: FDA-Public Use
  Company Number: FR-MERCK KGAA-2045988

PATIENT
  Age: 61 Year
  Sex: Female

DRUGS (1)
  1. NOVOTHYROX [Suspect]
     Active Substance: LEVOTHYROXINE SODIUM
     Indication: PRODUCT USED FOR UNKNOWN INDICATION

REACTIONS (13)
  - Suicidal ideation [None]
  - Disturbance in attention [None]
  - Dysgraphia [None]
  - Fatigue [None]
  - Decreased interest [None]
  - Social avoidant behaviour [None]
  - Impaired driving ability [None]
  - Headache [None]
  - Dizziness [None]
  - Psychiatric symptom [None]
  - Depressed mood [None]
  - Loss of personal independence in daily activities [None]
  - Mood swings [None]

NARRATIVE: CASE EVENT DATE: 2017
